FAERS Safety Report 19835844 (Version 1)
Quarter: 2021Q3

REPORT INFORMATION
  Report Type: Report from Study
  Country: None (occurrence: US)
  Receive Date: 20210916
  Receipt Date: 20210916
  Transmission Date: 20211014
  Serious: Yes (Other)
  Sender: FDA-Public Use
  Company Number: US-ABBVIE-21K-163-4076337-00

PATIENT
  Age: 70 Year
  Sex: Female

DRUGS (3)
  1. MODERNA COVID?19 VACCINE [Concomitant]
     Active Substance: CX-024414
     Indication: COVID-19 IMMUNISATION
  2. HUMIRA [Suspect]
     Active Substance: ADALIMUMAB
     Indication: RHEUMATOID ARTHRITIS
     Dosage: CITRATE FREE
     Route: 058
  3. HUMIRA [Suspect]
     Active Substance: ADALIMUMAB
     Indication: CROHN^S DISEASE

REACTIONS (14)
  - Benign neoplasm [Recovering/Resolving]
  - Bursitis [Unknown]
  - Peripheral swelling [Unknown]
  - Retching [Unknown]
  - Cervical vertebral fracture [Unknown]
  - Cellulitis [Unknown]
  - Vomiting [Unknown]
  - Dysstasia [Unknown]
  - White matter lesion [Unknown]
  - Diarrhoea [Unknown]
  - Abdominal pain upper [Unknown]
  - Leukaemia [Unknown]
  - Rib fracture [Unknown]
  - Myelofibrosis [Unknown]

NARRATIVE: CASE EVENT DATE: 2021
